FAERS Safety Report 9486617 (Version 2)
Quarter: 2013Q3

REPORT INFORMATION
  Report Type: Spontaneous
  Country: AU (occurrence: AU)
  Receive Date: 20130829
  Receipt Date: 20130905
  Transmission Date: 20140515
  Serious: Yes (Other)
  Sender: FDA-Public Use
  Company Number: AU-PFIZER INC-2013243066

PATIENT
  Age: 42 Year
  Sex: Male

DRUGS (4)
  1. ALPROSTADIL [Suspect]
     Dosage: UNK
     Dates: start: 20111019
  2. ACETYLSALICYLIC ACID [Concomitant]
     Dosage: 100 MG, DAILY
     Route: 048
     Dates: start: 20110901
  3. CLOPIDOGREL [Concomitant]
     Dosage: 75 MG, DAILY
     Route: 048
     Dates: start: 20110901
  4. HEPARIN SODIUM [Concomitant]
     Dosage: UNK
     Dates: start: 20111019

REACTIONS (2)
  - Haemorrhage [Unknown]
  - Convulsion [Unknown]
